FAERS Safety Report 9340290 (Version 1)
Quarter: 2013Q2

REPORT INFORMATION
  Report Type: Report from Study
  Country: FR (occurrence: FR)
  Receive Date: 20130610
  Receipt Date: 20130610
  Transmission Date: 20140414
  Serious: Yes (Hospitalization)
  Sender: FDA-Public Use
  Company Number: FR-PFIZER INC-2013170561

PATIENT
  Age: 56 Year
  Sex: Female

DRUGS (3)
  1. NARDIL [Suspect]
     Dosage: 45 MG A DAY
     Dates: start: 20120914, end: 20120927
  2. LYSANXIA [Concomitant]
  3. ATARAX [Concomitant]

REACTIONS (1)
  - Serotonin syndrome [Recovered/Resolved]
